FAERS Safety Report 5238765-1 (Version None)
Quarter: 2007Q1

REPORT INFORMATION
  Report Type: 
  Country: None (occurrence: None)
  Receive Date: 20070215
  Receipt Date: 20070207
  Transmission Date: 20070707
  Serious: Yes (Hospitalization, Other)
  Sender: FDA-Public Use
  Company Number: AU-PFIZER INC-2007004754

PATIENT
  Sex: Female
  Weight: 55 kg

DRUGS (4)
  1. SILDENAFIL (PAH) [Suspect]
     Indication: PULMONARY HYPERTENSION
     Route: 048
  2. BOSENTAN [Concomitant]
     Route: 048
  3. AMIODARONE HCL [Concomitant]
     Route: 048
  4. PANTOPRAZOLE SODIUM [Concomitant]
     Route: 048
     Dates: start: 20030101

REACTIONS (9)
  - CARDIAC STRESS TEST [None]
  - CEREBRAL ARTERY EMBOLISM [None]
  - CEREBROVASCULAR ACCIDENT [None]
  - CORONARY ARTERY EMBOLISM [None]
  - EMBOLIC STROKE [None]
  - HAEMOPTYSIS [None]
  - HEMIPARESIS [None]
  - PNEUMONIA [None]
  - VENTRICULAR DYSFUNCTION [None]
